FAERS Safety Report 4443950-2 (Version None)
Quarter: 2004Q3

REPORT INFORMATION
  Report Type: 
  Country: None (occurrence: None)
  Receive Date: 20040729
  Receipt Date: 20040521
  Transmission Date: 20050211
  Serious: Yes (Death)
  Sender: FDA-Public Use
  Company Number: US-JNJFOC-20040505767

PATIENT
  Age: 43 Year
  Sex: Male

DRUGS (3)
  1. RISPERDAL [Suspect]
     Indication: DRUG USE FOR UNKNOWN INDICATION
  2. REBIF [Suspect]
     Indication: MULTIPLE SCLEROSIS
     Dosage: 44 UG, 3 IN 1 WEEK, INTRVENOUS (NOT OTHERWISE SPECIFIED)
     Route: 042
  3. ALPRAZOLAM [Suspect]
     Indication: DRUG USE FOR UNKNOWN INDICATION

REACTIONS (3)
  - COMPLETED SUICIDE [None]
  - DEPRESSION [None]
  - VISION BLURRED [None]
